FAERS Safety Report 25146867 (Version 1)
Quarter: 2025Q2

REPORT INFORMATION
  Report Type: Spontaneous
  Country: IN (occurrence: IN)
  Receive Date: 20250401
  Receipt Date: 20250401
  Transmission Date: 20250717
  Serious: Yes (Death, Hospitalization, Other)
  Sender: MEDEXUS PHARMA
  Company Number: IN-MEDEXUS PHARMA, INC.-2025MED00071

PATIENT
  Age: 62 Year
  Sex: Male

DRUGS (3)
  1. METHOTREXATE [Suspect]
     Active Substance: METHOTREXATE
     Indication: Rheumatoid arthritis
     Dosage: 7.5 MG, 2X/DAY (ALSO REPORTED AS 120 MG PER WEEK)
  2. PREDNISOLONE [Concomitant]
     Active Substance: PREDNISOLONE
     Indication: Rheumatoid arthritis
     Dosage: 10 MG, 1X/DAY
  3. ACECLOFENAC [Concomitant]
     Active Substance: ACECLOFENAC
     Indication: Rheumatoid arthritis
     Dosage: UNK, 2X/DAY

REACTIONS (11)
  - Multiple organ dysfunction syndrome [Fatal]
  - Toxicity to various agents [Fatal]
  - Klebsiella bacteraemia [Unknown]
  - Klebsiella infection [Unknown]
  - Mucosal inflammation [Unknown]
  - Thrombocytopenia [Unknown]
  - Skin lesion [Unknown]
  - Myelosuppression [Unknown]
  - Neutropenic sepsis [Unknown]
  - Septic shock [Unknown]
  - Respiratory distress [Unknown]
